FAERS Safety Report 5108326-3 (Version None)
Quarter: 2006Q3

REPORT INFORMATION
  Report Type: 
  Country: None (occurrence: None)
  Receive Date: 20060914
  Receipt Date: 20060914
  Transmission Date: 20061208
  Serious: Yes (Hospitalization)
  Sender: FDA-Public Use
  Company Number: None

PATIENT
  Age: 56 Year
  Sex: Male
  Weight: 64.4108 kg

DRUGS (12)
  1. SULINDAC [Suspect]
     Indication: PAIN IN EXTREMITY
     Dosage: 150 MG BID PO
     Route: 048
     Dates: start: 20050114, end: 20060905
  2. ASPIRIN [Suspect]
     Indication: ISCHAEMIC HEART DISEASE PROPHYLAXIS
     Dosage: 325 MG DAILY PO
     Route: 048
     Dates: start: 20050101, end: 20060813
  3. VENFLAFAXINE [Concomitant]
  4. NPH INSULIN [Concomitant]
  5. LOPERAMIDE [Concomitant]
  6. METOCLOPRAMIDE [Concomitant]
  7. SIMVASTATIN [Concomitant]
  8. TESTOSTERONE [Concomitant]
  9. FLUDROCORTISONE [Concomitant]
  10. PANTOPAZOLE [Concomitant]
  11. SULINDAC [Concomitant]
  12. PROMETAZINE [Concomitant]

REACTIONS (17)
  - ABDOMINAL PAIN LOWER [None]
  - AGITATION [None]
  - BLOOD GLUCOSE INCREASED [None]
  - CONFUSIONAL STATE [None]
  - DEPRESSED LEVEL OF CONSCIOUSNESS [None]
  - DIARRHOEA [None]
  - DISORIENTATION [None]
  - FAECES DISCOLOURED [None]
  - FALL [None]
  - HAEMATEMESIS [None]
  - HYPERHIDROSIS [None]
  - HYPOTONIA [None]
  - MELAENA [None]
  - MUSCLE SPASMS [None]
  - NAUSEA [None]
  - PERIPHERAL COLDNESS [None]
  - VOMITING [None]
